FAERS Safety Report 4467068-8 (Version None)
Quarter: 2004Q4

REPORT INFORMATION
  Report Type: 
  Country: None (occurrence: None)
  Receive Date: 20041004
  Receipt Date: 20041004
  Transmission Date: 20050328
  Serious: Yes (Life-Threatening)
  Sender: FDA-Public Use
  Company Number: None

PATIENT
  Age: 29 Year
  Sex: Female

DRUGS (1)
  1. WELLBUTRIN XL [Suspect]
     Indication: BIPOLAR I DISORDER
     Dosage: 300 MG PO
     Route: 048
     Dates: start: 20040308, end: 20040316

REACTIONS (2)
  - GRAND MAL CONVULSION [None]
  - MEDICATION ERROR [None]
